FAERS Safety Report 8050398-0 (Version None)
Quarter: 2012Q1

REPORT INFORMATION
  Report Type: 
  Country: None (occurrence: None)
  Receive Date: 20120117
  Receipt Date: 20120104
  Transmission Date: 20120608
  Serious: Yes (Hospitalization)
  Sender: FDA-Public Use
  Company Number: US-ACTELION-A-NJ2011-58495

PATIENT

DRUGS (4)
  1. EPOPROSTENOL SODIUM [Suspect]
     Indication: PULMONARY ARTERIAL HYPERTENSION
     Dosage: 24 NG/KG, PER MIN
     Route: 041
     Dates: start: 20111024
  2. COUMADIN [Concomitant]
  3. SILDENAFIL [Concomitant]
  4. LETAIRIS [Concomitant]

REACTIONS (4)
  - HYPOTENSION [None]
  - NAUSEA [None]
  - VOMITING [None]
  - PNEUMONIA [None]
